FAERS Safety Report 4902804-5 (Version None)
Quarter: 2006Q1

REPORT INFORMATION
  Report Type: 
  Country: None (occurrence: None)
  Receive Date: 20060207
  Receipt Date: 20060110
  Transmission Date: 20060701
  Serious: Yes (Other)
  Sender: FDA-Public Use
  Company Number: DE-GLAXOSMITHKLINE-D0048410B

PATIENT
  Age: 40 Year
  Sex: Male

DRUGS (4)
  1. MALARONE [Suspect]
     Indication: MALARIA PROPHYLAXIS
     Dosage: 350MG PER DAY
     Route: 048
     Dates: start: 20051127, end: 20051218
  2. INFLUSPLIT SSW [Concomitant]
     Indication: PROPHYLAXIS
     Dosage: .5ML SINGLE DOSE
     Route: 065
     Dates: start: 20051020, end: 20051020
  3. STAMARIL [Concomitant]
     Indication: PROPHYLAXIS
     Dosage: .5ML SINGLE DOSE
     Route: 065
     Dates: start: 20050919, end: 20050919
  4. RABIPUR [Concomitant]
     Indication: PROPHYLAXIS
     Dosage: 1ML SINGLE DOSE
     Route: 065
     Dates: start: 20051013, end: 20051013

REACTIONS (4)
  - APHONIA [None]
  - DYSPHONIA [None]
  - VOCAL CORD PARALYSIS [None]
  - VOCAL CORD PARESIS [None]
